FAERS Safety Report 5242281-0 (Version None)
Quarter: 2007Q1

REPORT INFORMATION
  Report Type: 
  Country: None (occurrence: None)
  Receive Date: 20070216
  Receipt Date: 20070216
  Transmission Date: 20070707
  Serious: Yes (Other)
  Sender: FDA-Public Use
  Company Number: None

PATIENT
  Age: 32 Year
  Sex: Male
  Weight: 79.3795 kg

DRUGS (1)
  1. NUVARING [Suspect]
     Indication: CONTRACEPTION
     Dosage: ONE RING IN PLACE FOR 3 WEEKS VAG
     Route: 067
     Dates: start: 20061101, end: 20061201

REACTIONS (4)
  - CAUSTIC INJURY [None]
  - ERYTHEMA [None]
  - PENIS DISORDER [None]
  - SKIN EXFOLIATION [None]
